FAERS Safety Report 8902127 (Version 1)
Quarter: 2012Q4

REPORT INFORMATION
  Report Type: 
  Country: MX (occurrence: MX)
  Receive Date: 20121112
  Receipt Date: 20121112
  Transmission Date: 20130627
  Serious: Yes (Other)
  Sender: FDA-Public Use
  Company Number: PHHY2012MX103923

PATIENT
  Age: 6 Year
  Sex: Female

DRUGS (3)
  1. TRILEPTAL [Suspect]
     Indication: CONVULSION
     Dosage: 1 DF, daily
     Dates: start: 20120319
  2. RISPERIDONE [Concomitant]
     Dosage: 0.25 DF, UNK
  3. TRADEA [Concomitant]
     Dosage: 1 DF, daily

REACTIONS (2)
  - Cardiac murmur [Not Recovered/Not Resolved]
  - Tachycardia [Not Recovered/Not Resolved]
